FAERS Safety Report 23168276 (Version 1)
Quarter: 2023Q4

REPORT INFORMATION
  Report Type: Spontaneous
  Country: IT (occurrence: IT)
  Receive Date: 20231109
  Receipt Date: 20231109
  Transmission Date: 20240109
  Serious: Yes (Hospitalization, Other)
  Sender: FDA-Public Use
  Company Number: IT-STRIDES ARCOLAB LIMITED-2023SP016699

PATIENT
  Age: 55 Year
  Sex: Female

DRUGS (25)
  1. PREDNISOLONE [Suspect]
     Active Substance: PREDNISOLONE
     Indication: Diffuse large B-cell lymphoma
     Dosage: UNK, R-COMP REGIMEN AS FIRST LINE THERAPY
     Route: 065
     Dates: start: 2021, end: 2021
  2. DEXAMETHASONE [Suspect]
     Active Substance: DEXAMETHASONE
     Indication: Diffuse large B-cell lymphoma
     Dosage: UNK, R-DHAP REGIMEN AS SECOND LINE THERAPY
     Route: 065
     Dates: start: 2021, end: 2021
  3. DEXAMETHASONE [Suspect]
     Active Substance: DEXAMETHASONE
     Indication: Cytokine release syndrome
     Dosage: 10 MILLIGRAM, EVERY 6 HRS, ADMINISTERED AT EACH LUMBAR PUNCTURE. LATER, TAPER WAS INITIATED
     Route: 065
  4. DEXAMETHASONE [Suspect]
     Active Substance: DEXAMETHASONE
     Dosage: UNK, ADMINISTERED AT EACH LUMBAR
     Route: 065
  5. CISPLATIN [Suspect]
     Active Substance: CISPLATIN
     Indication: Diffuse large B-cell lymphoma
     Dosage: UNK, R-DHAP REGIMEN AS SECOND LINE THERAPY
     Route: 065
     Dates: start: 2021, end: 2021
  6. EPIRUBICIN [Suspect]
     Active Substance: EPIRUBICIN
     Indication: Diffuse large B-cell lymphoma
     Dosage: UNK, R-IEV REGIMEN
     Route: 065
  7. ETOPOSIDE [Suspect]
     Active Substance: ETOPOSIDE
     Indication: Diffuse large B-cell lymphoma
     Dosage: UNK, R-IEV REGIMEN
     Route: 065
  8. CYCLOPHOSPHAMIDE [Suspect]
     Active Substance: CYCLOPHOSPHAMIDE
     Indication: Diffuse large B-cell lymphoma
     Dosage: UNK, R-COMP REGIMEN AS FIRST LINE THERAPY
     Route: 065
     Dates: start: 2021, end: 2021
  9. CYCLOPHOSPHAMIDE [Suspect]
     Active Substance: CYCLOPHOSPHAMIDE
     Indication: Chemotherapy
     Dosage: UNK, CONDITIONING CHEMOTHERAPY
     Route: 065
     Dates: start: 202201
  10. VINCRISTINE [Suspect]
     Active Substance: VINCRISTINE
     Indication: Diffuse large B-cell lymphoma
     Dosage: UNK, R-COMP REGIMEN AS FIRST LINE THERAPY
     Route: 065
     Dates: start: 2021, end: 2021
  11. DOXORUBICIN [Suspect]
     Active Substance: DOXORUBICIN
     Indication: Diffuse large B-cell lymphoma
     Dosage: UNK, R-COMP REGIMEN AS FIRST LINE THERAPY
     Route: 065
     Dates: start: 2021, end: 2021
  12. RITUXIMAB [Suspect]
     Active Substance: RITUXIMAB
     Indication: Diffuse large B-cell lymphoma
     Dosage: UNK,R-COMP REGIMEN AS FIRST LINE THERAPY
     Route: 065
     Dates: start: 2021, end: 2021
  13. RITUXIMAB [Suspect]
     Active Substance: RITUXIMAB
     Dosage: UNK,R-DHAP REGIMEN AS SECOND LINE THERAPY
     Route: 065
     Dates: start: 2021, end: 2021
  14. RITUXIMAB [Suspect]
     Active Substance: RITUXIMAB
     Dosage: UNK, R-IEV REGIMEN
     Route: 065
  15. CYTARABINE [Suspect]
     Active Substance: CYTARABINE
     Indication: Diffuse large B-cell lymphoma
     Dosage: R-DHAP REGIMEN AS SECOND LINE THERAPY
     Route: 065
     Dates: start: 2021, end: 2021
  16. IFOSFAMIDE [Suspect]
     Active Substance: IFOSFAMIDE
     Indication: Diffuse large B-cell lymphoma
     Dosage: UNK, R-IEV REGIMEN
     Route: 065
  17. AXICABTAGENE CILOLEUCEL [Suspect]
     Active Substance: AXICABTAGENE CILOLEUCEL
     Indication: Diffuse large B-cell lymphoma
     Dosage: UNK, 144 X 10^6 CD3+ T CELLS (80.8% CD19-CAR-T POSITIVE; 3,8:1 CD4:CD8 RATIO).
     Route: 065
     Dates: start: 202201
  18. AXICABTAGENE CILOLEUCEL [Suspect]
     Active Substance: AXICABTAGENE CILOLEUCEL
     Indication: Chemotherapy
  19. METHYLPREDNISOLONE [Suspect]
     Active Substance: METHYLPREDNISOLONE
     Indication: Immune effector cell-associated neurotoxicity syndrome
     Dosage: 100 MILLIGRAM, PER DAY
     Route: 065
     Dates: start: 2022
  20. METHYLPREDNISOLONE [Suspect]
     Active Substance: METHYLPREDNISOLONE
     Dosage: UNK, ADMINISTERED AT EACH LUMBAR PUNCTURE. LATER, TAPER WAS INITIATED
     Route: 065
     Dates: start: 2022
  21. METHYLPREDNISOLONE [Suspect]
     Active Substance: METHYLPREDNISOLONE
     Dosage: UNK, TAPPERING DOSE
     Route: 065
     Dates: start: 2022
  22. TOCILIZUMAB [Suspect]
     Active Substance: TOCILIZUMAB
     Indication: Cytokine release syndrome
     Dosage: UNK, RECEIVED 2 DOSES
     Route: 065
     Dates: start: 2022, end: 2022
  23. FLUDARABINE [Suspect]
     Active Substance: FLUDARABINE PHOSPHATE
     Indication: Chemotherapy
     Dosage: UNK
     Route: 065
     Dates: start: 202201, end: 2022
  24. FLUDARABINE [Suspect]
     Active Substance: FLUDARABINE PHOSPHATE
     Indication: Diffuse large B-cell lymphoma
  25. ANAKINRA [Concomitant]
     Active Substance: ANAKINRA
     Indication: Immune effector cell-associated neurotoxicity syndrome
     Dosage: 1000 MILLIGRAM PER DAY
     Route: 065
     Dates: start: 2022, end: 2022

REACTIONS (5)
  - Neutropenia [Unknown]
  - Pneumonia fungal [Recovered/Resolved]
  - Disease progression [Unknown]
  - Diffuse large B-cell lymphoma refractory [Unknown]
  - Off label use [Unknown]

NARRATIVE: CASE EVENT DATE: 20210501
